FAERS Safety Report 5177132-6 (Version None)
Quarter: 2006Q4

REPORT INFORMATION
  Report Type: 
  Country: None (occurrence: None)
  Receive Date: 20061207
  Receipt Date: 20061129
  Transmission Date: 20070319
  Serious: Yes (Hospitalization)
  Sender: FDA-Public Use
  Company Number: 002#8#2006-00341

PATIENT
  Age: 74 Year
  Sex: Male

DRUGS (2)
  1. NIRAVAM [Suspect]
     Indication: MAJOR DEPRESSION
  2. PAROXETINE HCL [Suspect]
     Indication: MAJOR DEPRESSION

REACTIONS (1)
  - NEUROLEPTIC MALIGNANT SYNDROME [None]
